FAERS Safety Report 24696774 (Version 1)
Quarter: 2024Q4

REPORT INFORMATION
  Report Type: Report from Study
  Country: JP (occurrence: JP)
  Receive Date: 20241204
  Receipt Date: 20241204
  Transmission Date: 20250115
  Serious: Yes (Other)
  Sender: MYLAN
  Company Number: JP-MYLANLABS-2024M1108126

PATIENT
  Age: 10 Year
  Sex: Male
  Weight: 31.7 kg

DRUGS (1)
  1. CYCLOSPORINE [Suspect]
     Active Substance: CYCLOSPORINE
     Indication: Nephrotic syndrome
     Route: 065

REACTIONS (1)
  - Drug ineffective [Unknown]
